FAERS Safety Report 5519590-0 (Version None)
Quarter: 2007Q4

REPORT INFORMATION
  Report Type: 
  Country: None (occurrence: None)
  Receive Date: 20071116
  Receipt Date: 20071108
  Transmission Date: 20080405
  Serious: Yes (Other)
  Sender: FDA-Public Use
  Company Number: US-ELI_LILLY_AND_COMPANY-US200711002313

PATIENT
  Age: 67 Year
  Sex: Male

DRUGS (10)
  1. BYETTA [Suspect]
     Dosage: 10 UG, 2/D
     Route: 058
     Dates: start: 20070101, end: 20071001
  2. COUMADIN [Concomitant]
     Dosage: UNK, UNKNOWN
  3. LISINOPRIL [Concomitant]
     Dosage: UNK, UNKNOWN
  4. GLUCOVANCE [Concomitant]
     Dosage: UNK, UNKNOWN
  5. AVODART [Concomitant]
     Dosage: UNK, UNKNOWN
  6. LASIX [Concomitant]
     Dosage: UNK, UNKNOWN
  7. HYDROCHLOROTHIAZIDE [Concomitant]
     Dosage: UNK, UNKNOWN
  8. HYTRIN [Concomitant]
     Dosage: UNK, UNKNOWN
  9. LANTUS [Concomitant]
     Dosage: UNK, UNKNOWN
  10. NOVOLOG [Concomitant]
     Dosage: UNK, UNKNOWN

REACTIONS (1)
  - PANCREATIC CARCINOMA [None]
